FAERS Safety Report 9098004 (Version 8)
Quarter: 2013Q3

REPORT INFORMATION
  Report Type: Report from Study
  Country: IT (occurrence: IT)
  Receive Date: 20130212
  Receipt Date: 20130930
  Transmission Date: 20140515
  Serious: Yes (Hospitalization)
  Sender: FDA-Public Use
  Company Number: IT-ROCHE-1188840

PATIENT
  Age: 61 Year
  Sex: Female

DRUGS (23)
  1. PERTUZUMAB [Suspect]
     Indication: BREAST CANCER
     Dosage: LOADING DOSE?DOSE PRIOR TO SAE:21/DEC/2012. PERMANENT DISCONTINUATION ON 25/FEB/2013
     Route: 042
     Dates: start: 20121130, end: 20130225
  2. PERTUZUMAB [Suspect]
     Dosage: MAINTENENCE DOSE
     Route: 042
     Dates: end: 20130225
  3. TRASTUZUMAB [Suspect]
     Indication: BREAST CANCER
     Dosage: LOADING DOSE?PERMANENT DISCONTINUATION ON 25/FEB/2013
     Route: 042
     Dates: end: 20130225
  4. TRASTUZUMAB [Suspect]
     Dosage: MAINTENENCE DOSE ?DOSE PRIOR TO SAE:21/DEC/2012
     Route: 065
     Dates: start: 20121130, end: 20130225
  5. PACLITAXEL [Suspect]
     Indication: BREAST CANCER
     Dosage: DATE OF LAST DOSE PRIOR TO SAE ONSET WAS 28/DEC/2013, PERMANENT DISCONTINUATION ON 25/FEB/2013
     Route: 042
     Dates: start: 20121130, end: 20130225
  6. CONTRAMAL [Concomitant]
     Dosage: 25 DROPS
     Route: 065
     Dates: start: 20121113, end: 20130606
  7. TACHIDOL [Concomitant]
     Route: 065
     Dates: start: 20121113, end: 20130606
  8. NEBIVOLOL [Concomitant]
     Route: 065
     Dates: start: 20120928, end: 20130410
  9. NEBIVOLOL [Concomitant]
     Route: 065
     Dates: start: 20130415
  10. DISSENTEN [Concomitant]
     Route: 065
     Dates: start: 20121203, end: 20121203
  11. HYDROCORTISONE [Concomitant]
     Dosage: TOTAL DAILY DOSE: 2ML 250MG
     Route: 065
     Dates: start: 20121130, end: 20121228
  12. ONDANSETRON [Concomitant]
     Indication: VOMITING
     Dosage: TOTAL DAILY DOSE: 8MG 2ML
     Route: 065
     Dates: start: 20121130, end: 20121228
  13. RANITIDINE [Concomitant]
     Indication: GASTRITIS
     Dosage: TOTAL DAILY DOSE: 5ML 50MG
     Route: 065
     Dates: start: 20121130, end: 20130124
  14. TRIMETON (CHLORPHENIRAMINE MALEATE) [Concomitant]
     Dosage: TOTAL DAILY DOSE: 1ML 10MG
     Route: 065
     Dates: start: 20121130, end: 20121228
  15. CIPROFLOXACIN [Concomitant]
     Route: 065
     Dates: start: 20121217, end: 20121224
  16. ZOLEDRONIC ACID [Concomitant]
     Route: 065
     Dates: start: 20121228
  17. METOCLOPRAMIDE [Concomitant]
     Route: 065
     Dates: start: 20130111, end: 20130124
  18. DEXAMETHASONE [Concomitant]
     Route: 065
     Dates: start: 20130111, end: 20130124
  19. DEXAMETHASONE [Concomitant]
     Route: 065
     Dates: start: 20130111, end: 20130124
  20. LEVOFLOXACIN [Concomitant]
     Route: 065
     Dates: start: 20130110, end: 20130115
  21. LOPERAMIDE HCL [Concomitant]
     Route: 065
     Dates: start: 20121203, end: 20130210
  22. VITAMIN A [Concomitant]
     Dosage: TOTAL DAILY DOSE: 1 VIAL
     Route: 065
     Dates: start: 20130111, end: 20130124
  23. FULVESTRANT [Concomitant]
     Route: 065
     Dates: start: 20130308

REACTIONS (1)
  - Cardiac failure [Recovered/Resolved]
